FAERS Safety Report 6784356-0 (Version None)
Quarter: 2010Q2

REPORT INFORMATION
  Report Type: 
  Country: None (occurrence: None)
  Receive Date: 20100622
  Receipt Date: 20100616
  Transmission Date: 20101027
  Serious: Yes (Hospitalization)
  Sender: FDA-Public Use
  Company Number: JP-MERCK-1006USA03043

PATIENT
  Age: 59 Year
  Sex: Female

DRUGS (4)
  1. JANUVIA [Suspect]
     Indication: BLOOD GLUCOSE ABNORMAL
     Route: 048
     Dates: start: 20100401, end: 20100407
  2. AMARYL [Concomitant]
     Dosage: DOSAGE WAS UNCERTAIN DURING A DAY
     Route: 048
  3. METFORMIN HCL [Concomitant]
     Dosage: DOSAGE WAS UNCERTAIN DURING A DAY
     Route: 048
  4. LIVALO [Concomitant]
     Dosage: DOSAGE WAS UNCERTAIN DURING A DAY
     Route: 048

REACTIONS (1)
  - ILEUS [None]
